FAERS Safety Report 21194164 (Version 1)
Quarter: 2022Q3

REPORT INFORMATION
  Report Type: Spontaneous
  Country: EC (occurrence: EC)
  Receive Date: 20220810
  Receipt Date: 20220810
  Transmission Date: 20221026
  Serious: Yes (Death)
  Sender: FDA-Public Use
  Company Number: EC-Ipsen Biopharmaceuticals, Inc.-2022-22954

PATIENT
  Age: 89 Year
  Sex: Female

DRUGS (1)
  1. DYSPORT [Suspect]
     Active Substance: ABOBOTULINUMTOXINA
     Indication: Muscle spasticity
     Dosage: 1000 UNITS
     Route: 030
     Dates: start: 20201210, end: 20210910

REACTIONS (1)
  - Death [Fatal]

NARRATIVE: CASE EVENT DATE: 20211106
